FAERS Safety Report 4490591-7 (Version None)
Quarter: 2004Q4

REPORT INFORMATION
  Report Type: 
  Country: None (occurrence: None)
  Receive Date: 20041027
  Receipt Date: 20041021
  Transmission Date: 20050328
  Serious: Yes (Hospitalization, Other)
  Sender: FDA-Public Use
  Company Number: DEWYE029120FEB03

PATIENT
  Age: 62 Year
  Sex: Male

DRUGS (13)
  1. SIROLIMUS (SIROLIMUS, TABLET, 0) [Suspect]
     Indication: RENAL TRANSPLANT
     Dosage: VARIABLE BETWEEN 2-3 MG; ORAL
     Route: 048
     Dates: start: 20021119, end: 20030217
  2. FUROSEMIDE [Concomitant]
  3. COTRIM FORTE-RATIOPHARM (SULFAMETHOXAZOLE/TRIMETHOPRIM) [Concomitant]
  4. AMPHO-MORONAL (AMPHOTERICIN B) [Concomitant]
  5. RANITIDINE HCL [Concomitant]
  6. CIPROFLOXACIN [Concomitant]
  7. URSO FALK [Concomitant]
  8. AMPICILLIN [Concomitant]
  9. ELOBACT (CEFUROXIME AXETIL) [Concomitant]
  10. METRONIDAZOLE [Concomitant]
  11. FERRLECIT [Concomitant]
  12. METHYLPREDNISOLONE [Concomitant]
  13. PANTOZOL (PANTOPRAZOLE SODIUM) [Concomitant]

REACTIONS (6)
  - ANAEMIA [None]
  - DIARRHOEA [None]
  - GASTROINTESTINAL HAEMORRHAGE [None]
  - KIDNEY TRANSPLANT REJECTION [None]
  - LEUKOPENIA [None]
  - UROSEPSIS [None]
